FAERS Safety Report 7874759 (Version 2)
Quarter: 2013Q2

REPORT INFORMATION
  Report Type: Spontaneous
  Country: US (occurrence: None)
  Receive Date: 20110225
  Receipt Date: 20120827
  Transmission Date: 20140414
  Serious: No
  Sender: FDA-Public Use
  Company Number: 318993

PATIENT
  Age: 44 Year
  Sex: Female

DRUGS (1)
  1. VICTOZA [Suspect]
     Indication: TYPE 2 DIABETES MELLITUS
     Route: 058

REACTIONS (5)
  - ABDOMINAL PAIN [None]
  - DIARRHOEA [None]
  - FLATULENCE [None]
  - ERUCTATION [None]
  - Muscle spasms [None]
